FAERS Safety Report 7658303-3 (Version None)
Quarter: 2011Q3

REPORT INFORMATION
  Report Type: 
  Country: None (occurrence: None)
  Receive Date: 20110805
  Receipt Date: 20110803
  Transmission Date: 20111222
  Serious: Yes (Other)
  Sender: FDA-Public Use
  Company Number: US-PFIZER INC-2011177834

PATIENT
  Sex: Female
  Weight: 63.5 kg

DRUGS (3)
  1. PRISTIQ [Suspect]
     Indication: ANXIETY
  2. SYNTHROID [Concomitant]
     Indication: HYPOTHYROIDISM
     Dosage: UNK
  3. PRISTIQ [Suspect]
     Indication: DEPRESSION
     Dosage: 200 MG, 1X/DAY
     Route: 048
     Dates: start: 20100101, end: 20110730

REACTIONS (3)
  - WEIGHT INCREASED [None]
  - DIZZINESS [None]
  - CONFUSIONAL STATE [None]
